FAERS Safety Report 9770702 (Version 2)
Quarter: 2014Q2

REPORT INFORMATION
  Report Type: Spontaneous
  Country: IT (occurrence: IT)
  Receive Date: 20131218
  Receipt Date: 20140425
  Transmission Date: 20141212
  Serious: Yes (Death)
  Sender: FDA-Public Use
  Company Number: IT-GLAXOSMITHKLINE-B0953866A

PATIENT
  Age: 3 Year
  Sex: Male

DRUGS (2)
  1. ATRIANCE [Suspect]
     Indication: ACUTE LYMPHOCYTIC LEUKAEMIA
     Dosage: 400MG PER DAY
     Route: 042
     Dates: start: 20131108, end: 20131112
  2. METHYLPREDNISOLONE HEMISUCCINATE [Concomitant]
     Indication: ACUTE LYMPHOCYTIC LEUKAEMIA
     Dosage: 6MG PER DAY
     Route: 042
     Dates: start: 20131108, end: 20131115

REACTIONS (4)
  - Cerebral atrophy [Fatal]
  - Tremor [Unknown]
  - Hallucination [Unknown]
  - Coma [Unknown]
